FAERS Safety Report 5291186-8 (Version None)
Quarter: 2007Q2

REPORT INFORMATION
  Report Type: 
  Country: None (occurrence: None)
  Receive Date: 20070409
  Receipt Date: 20070408
  Transmission Date: 20071010
  Serious: Yes (Death)
  Sender: FDA-Public Use
  Company Number: DE-GENENTECH-236356

PATIENT
  Sex: Male

DRUGS (1)
  1. ACTIVASE [Suspect]
     Indication: CEREBRAL INFARCTION
     Dosage: 54 MG, SINGLE
     Route: 042
     Dates: start: 20070129, end: 20070129

REACTIONS (4)
  - BLOOD PRESSURE DECREASED [None]
  - CARDIAC ARREST [None]
  - DEATH [None]
  - RESPIRATORY ARREST [None]
